FAERS Safety Report 7090347-5 (Version None)
Quarter: 2010Q4

REPORT INFORMATION
  Report Type: 
  Country: None (occurrence: None)
  Receive Date: 20101109
  Receipt Date: 20101102
  Transmission Date: 20110411
  Serious: Yes (Other)
  Sender: FDA-Public Use
  Company Number: US-SANOFI-AVENTIS-2009SA002739

PATIENT
  Sex: Male
  Weight: 74.8 kg

DRUGS (13)
  1. UROXATRAL [Suspect]
     Indication: PROSTATIC DISORDER
     Route: 048
     Dates: start: 20091101
  2. UROXATRAL [Suspect]
     Route: 048
     Dates: start: 20091101
  3. FUROSEMIDE [Suspect]
     Route: 065
  4. AMBIEN [Suspect]
     Route: 065
  5. DILTIAZEM [Suspect]
     Indication: BLOOD PRESSURE ABNORMAL
     Route: 048
     Dates: start: 20050101
  6. POTASSIUM CHLORIDE [Suspect]
     Route: 048
     Dates: start: 20050101
  7. AVODART [Suspect]
     Indication: PROSTATIC DISORDER
     Route: 048
     Dates: start: 20070101
  8. ZETIA [Suspect]
     Route: 048
     Dates: start: 20060101
  9. METOPROLOL [Suspect]
     Indication: BLOOD PRESSURE ABNORMAL
     Route: 048
     Dates: start: 20050101
  10. QUINAPRIL [Suspect]
     Indication: BLOOD PRESSURE ABNORMAL
     Route: 048
     Dates: start: 20030101
  11. ALPRAZOLAM [Suspect]
     Indication: NERVOUS SYSTEM DISORDER
     Route: 048
     Dates: start: 19880101
  12. ARICEPT [Suspect]
     Route: 048
     Dates: start: 20100101, end: 20100901
  13. NAMENDA [Suspect]
     Indication: DEMENTIA
     Route: 048
     Dates: start: 20100921

REACTIONS (18)
  - ABDOMINAL DISCOMFORT [None]
  - BLADDER DISCOMFORT [None]
  - DEMENTIA [None]
  - DIARRHOEA [None]
  - DIZZINESS [None]
  - DYSURIA [None]
  - ERYTHEMA [None]
  - EYE IRRITATION [None]
  - GAIT DISTURBANCE [None]
  - HEADACHE [None]
  - INSOMNIA [None]
  - MALAISE [None]
  - NAUSEA [None]
  - OEDEMA PERIPHERAL [None]
  - SOMNOLENCE [None]
  - STRESS [None]
  - URINE FLOW DECREASED [None]
  - VITAMIN D DECREASED [None]
